FAERS Safety Report 5389597-5 (Version None)
Quarter: 2007Q3

REPORT INFORMATION
  Report Type: 
  Country: None (occurrence: None)
  Receive Date: 20070717
  Receipt Date: 20070705
  Transmission Date: 20080115
  Serious: Yes (Other)
  Sender: FDA-Public Use
  Company Number: BR-PFIZER INC-2007055874

PATIENT
  Age: 65 Year
  Sex: Female

DRUGS (2)
  1. EXUBERA [Suspect]
     Indication: TYPE 2 DIABETES MELLITUS
     Route: 055
     Dates: start: 20070601, end: 20070101
  2. INSULIN [Concomitant]
     Route: 058

REACTIONS (6)
  - BREATH SOUNDS [None]
  - COUGH [None]
  - DYSPNOEA [None]
  - HAEMOPTYSIS [None]
  - PRODUCTIVE COUGH [None]
  - PULMONARY OEDEMA [None]
